FAERS Safety Report 22264306 (Version 1)
Quarter: 2023Q2

REPORT INFORMATION
  Report Type: Spontaneous
  Country: ES (occurrence: None)
  Receive Date: 20230428
  Receipt Date: 20230428
  Transmission Date: 20230722
  Serious: Yes (Other)
  Sender: FDA-Public Use
  Company Number: ES-ROCHE-3338915

PATIENT
  Sex: Male

DRUGS (2)
  1. RIVOTRIL [Suspect]
     Active Substance: CLONAZEPAM
     Indication: Product used for unknown indication
     Dosage: CONCENTRATE AND DISSOLVENT FOR INJECTABLE SOLUTION, 5 AMPOULES OF 1 ML
     Route: 042
     Dates: start: 20220210, end: 20220210
  2. RIVOTRIL [Suspect]
     Active Substance: CLONAZEPAM
     Dosage: 5 DROP IN
     Route: 048

REACTIONS (3)
  - Depressed level of consciousness [Recovered/Resolved]
  - Inappropriate schedule of product administration [Unknown]
  - Therapy change [Recovered/Resolved]

NARRATIVE: CASE EVENT DATE: 20220210
